FAERS Safety Report 4575444-8 (Version None)
Quarter: 2005Q1

REPORT INFORMATION
  Report Type: 
  Country: None (occurrence: None)
  Receive Date: 20050131
  Receipt Date: 20050131
  Transmission Date: 20050727
  Serious: No
  Sender: FDA-Public Use
  Company Number: None

PATIENT
  Age: 41 Year
  Sex: Female
  Weight: 56.6996 kg

DRUGS (1)
  1. LUBRICATING AND REWETTING DROPS    EQUATE [Suspect]
     Dosage: 2-3 DROPS         OPHTHALMIC
     Route: 047
     Dates: start: 20050124, end: 20050128

REACTIONS (8)
  - APPLICATION SITE REACTION [None]
  - EYE IRRITATION [None]
  - EYE PAIN [None]
  - EYELID FUNCTION DISORDER [None]
  - HEADACHE [None]
  - LACRIMATION INCREASED [None]
  - PHARMACEUTICAL PRODUCT COMPLAINT [None]
  - PHOTOPHOBIA [None]
